FAERS Safety Report 17579719 (Version 1)
Quarter: 2020Q1

REPORT INFORMATION
  Report Type: Spontaneous
  Country: FR (occurrence: FR)
  Receive Date: 20200325
  Receipt Date: 20200325
  Transmission Date: 20200409
  Serious: Yes (Hospitalization)
  Sender: FDA-Public Use
  Company Number: FR-HIKMA PHARMACEUTICALS USA INC.-FR-H14001-20-50910

PATIENT
  Age: 66 Year
  Sex: Male

DRUGS (8)
  1. TAZOCILLINE [Concomitant]
     Active Substance: PIPERACILLIN SODIUM\TAZOBACTAM SODIUM
     Indication: LUNG DISORDER
     Route: 042
     Dates: start: 20200205, end: 20200209
  2. CEFOTIAXIME BASE [Concomitant]
     Indication: LUNG DISORDER
     Route: 042
     Dates: start: 20200129, end: 20200204
  3. GENTAMICINE [Concomitant]
     Active Substance: GENTAMICIN
     Indication: LUNG DISORDER
     Route: 042
     Dates: start: 20200205, end: 20200206
  4. VANCOMYCINE [Suspect]
     Active Substance: VANCOMYCIN
     Indication: LUNG DISORDER
     Route: 042
     Dates: start: 20200205, end: 20200208
  5. TAMIFLU [Concomitant]
     Active Substance: OSELTAMIVIR PHOSPHATE
     Indication: LUNG DISORDER
     Route: 048
     Dates: start: 20200130, end: 20200204
  6. CEFOTIAXIME BASE [Concomitant]
     Route: 042
     Dates: start: 20200209, end: 20200210
  7. ZARZIO [Concomitant]
     Active Substance: FILGRASTIM
     Indication: PRODUCT USED FOR UNKNOWN INDICATION
     Route: 065
  8. LANSOPRAZOLE. [Concomitant]
     Active Substance: LANSOPRAZOLE
     Indication: PRODUCT USED FOR UNKNOWN INDICATION
     Route: 048

REACTIONS (2)
  - Purpura [Recovered/Resolved]
  - Rash maculo-papular [Recovering/Resolving]

NARRATIVE: CASE EVENT DATE: 20200209
